FAERS Safety Report 9582845 (Version 1)
Quarter: 2013Q4

REPORT INFORMATION
  Report Type: Spontaneous
  Country: US (occurrence: US)
  Receive Date: 20131002
  Receipt Date: 20131002
  Transmission Date: 20140711
  Serious: No
  Sender: FDA-Public Use
  Company Number: US-AMGEN-USASP2013042895

PATIENT
  Age: 40 Year
  Sex: Female

DRUGS (1)
  1. ENBREL [Suspect]
     Indication: HIDRADENITIS
     Dosage: 50 MG, QWK
     Route: 058
     Dates: start: 201304, end: 20130506

REACTIONS (1)
  - Drug ineffective [Unknown]
